FAERS Safety Report 16410526 (Version 1)
Quarter: 2019Q3

REPORT INFORMATION
  Report Type: Spontaneous
  Country: US (occurrence: US)
  Receive Date: 20190607
  Receipt Date: 20190607
  Transmission Date: 20191004
  Serious: Yes (Disabling)
  Sender: FDA-Public Use
  Company Number: None

PATIENT
  Age: 58 Year
  Sex: Female
  Weight: 81 kg

DRUGS (7)
  1. HECTOR [Concomitant]
  2. MESTINON [Concomitant]
     Active Substance: PYRIDOSTIGMINE BROMIDE
  3. SOLIRIS [Suspect]
     Active Substance: ECULIZUMAB
     Indication: MYASTHENIA GRAVIS
     Route: 042
     Dates: start: 20181024, end: 20181120
  4. INTERNAL LOOP RECORD [Concomitant]
  5. AGGRENOX [Concomitant]
     Active Substance: ASPIRIN\DIPYRIDAMOLE
  6. LYRICA [Concomitant]
     Active Substance: PREGABALIN
  7. LIPITOR [Concomitant]
     Active Substance: ATORVASTATIN CALCIUM

REACTIONS (4)
  - Skin hypertrophy [None]
  - Hypoaesthesia [None]
  - Nail disorder [None]
  - Lymphadenopathy [None]

NARRATIVE: CASE EVENT DATE: 20181120
